FAERS Safety Report 26169113 (Version 1)
Quarter: 2025Q4

REPORT INFORMATION
  Report Type: Spontaneous
  Country: US (occurrence: None)
  Receive Date: 20251216
  Receipt Date: 20251216
  Transmission Date: 20260118
  Serious: Yes (Hospitalization)
  Sender: FDA-CTU
  Company Number: None

PATIENT
  Age: 76 Year
  Sex: Female

DRUGS (1)
  1. KISQALI [Suspect]
     Active Substance: RIBOCICLIB SUCCINATE
     Indication: Breast cancer female
     Dosage: FREQUENCY : DAILY;

REACTIONS (10)
  - Abdominal discomfort [None]
  - Nausea [None]
  - Vomiting [None]
  - Fatigue [None]
  - Balance disorder [None]
  - Pain [None]
  - Atrial fibrillation [None]
  - Vascular procedure complication [None]
  - Venipuncture [None]
  - Vein collapse [None]
